FAERS Safety Report 5817078-0 (Version None)
Quarter: 2008Q3

REPORT INFORMATION
  Report Type: 
  Country: None (occurrence: None)
  Receive Date: 20080722
  Receipt Date: 20080714
  Transmission Date: 20090109
  Serious: Yes (Hospitalization)
  Sender: FDA-Public Use
  Company Number: IT-KINGPHARMUSA00001-K200800822

PATIENT
  Age: 50 Year
  Sex: Male

DRUGS (2)
  1. SEPTRA [Suspect]
     Indication: ARTHROPOD BITE
     Dates: start: 20070501, end: 20070101
  2. CYCLOSPORINE [Suspect]
     Indication: PSORIASIS
     Dosage: 3 MCG/KG, QD
     Dates: start: 20070301, end: 20070101

REACTIONS (8)
  - DRUG INTERACTION [None]
  - ERYTHRODERMIC PSORIASIS [None]
  - MALAISE [None]
  - OEDEMA PERIPHERAL [None]
  - PRURITUS GENERALISED [None]
  - PYREXIA [None]
  - RASH GENERALISED [None]
  - SKIN EXFOLIATION [None]
